FAERS Safety Report 11716271 (Version 2)
Quarter: 2016Q2

REPORT INFORMATION
  Report Type: Spontaneous
  Country: US (occurrence: US)
  Receive Date: 20151109
  Receipt Date: 20160609
  Transmission Date: 20160815
  Serious: Yes (Other)
  Sender: FDA-Public Use
  Company Number: US-DSJP-DSU-2015-120660

PATIENT
  Age: 69 Year
  Sex: Male
  Weight: 94.79 kg

DRUGS (6)
  1. BENICAR [Suspect]
     Active Substance: OLMESARTAN MEDOXOMIL
     Dosage: 40 MG, UNK
     Dates: start: 20110809
  2. AZOR [Suspect]
     Active Substance: AMLODIPINE BESYLATE\OLMESARTAN MEDOXOMIL
     Indication: HYPERTENSION
     Dosage: UNK
     Dates: start: 20080218, end: 20080320
  3. BENICAR [Suspect]
     Active Substance: OLMESARTAN MEDOXOMIL
     Indication: HYPERTENSION
     Dosage: UNK
     Dates: start: 200806
  4. BENICAR HCT [Suspect]
     Active Substance: HYDROCHLOROTHIAZIDE\OLMESARTAN MEDOXOMIL
     Indication: HYPERTENSION
     Dosage: 40/25 MG
     Dates: start: 20080529, end: 201003
  5. BENICAR [Suspect]
     Active Substance: OLMESARTAN MEDOXOMIL
     Dosage: 25 MG, UNK
     Dates: start: 2008, end: 2010
  6. BENICAR HCT [Suspect]
     Active Substance: HYDROCHLOROTHIAZIDE\OLMESARTAN MEDOXOMIL
     Dosage: 40/25 MG, UNK
     Dates: start: 20100420

REACTIONS (10)
  - Renal cyst [Unknown]
  - Gastrooesophageal reflux disease [Unknown]
  - Malabsorption [Recovered/Resolved]
  - Hydronephrosis [Unknown]
  - Renal disorder [Unknown]
  - Stag horn calculus [Unknown]
  - Dyspepsia [Unknown]
  - Nephrolithiasis [Recovered/Resolved]
  - Hiatus hernia [Unknown]
  - Coeliac disease [Unknown]

NARRATIVE: CASE EVENT DATE: 20100801
